FAERS Safety Report 4708504-9 (Version None)
Quarter: 2005Q3

REPORT INFORMATION
  Report Type: 
  Country: None (occurrence: None)
  Receive Date: 20050707
  Receipt Date: 20050627
  Transmission Date: 20060218
  Serious: Yes (Hospitalization)
  Sender: FDA-Public Use
  Company Number: FR-SANOFI-SYNTHELABO-A02200501706

PATIENT
  Age: 82 Year
  Sex: Female

DRUGS (5)
  1. PLAVIX [Suspect]
     Indication: DRUG USE FOR UNKNOWN INDICATION
     Route: 048
     Dates: start: 20030101
  2. DEROXAT [Suspect]
     Indication: DRUG USE FOR UNKNOWN INDICATION
     Route: 048
     Dates: start: 20030101
  3. LYTOS [Suspect]
     Indication: DRUG USE FOR UNKNOWN INDICATION
     Dosage: 1040 MG
     Route: 048
     Dates: start: 20040401
  4. AROMASINE [Suspect]
     Indication: DRUG USE FOR UNKNOWN INDICATION
     Route: 048
     Dates: start: 20040401
  5. LASIX [Suspect]
     Indication: DRUG USE FOR UNKNOWN INDICATION
     Route: 048

REACTIONS (5)
  - CLUMSINESS [None]
  - DEMENTIA [None]
  - DISORIENTATION [None]
  - FALL [None]
  - TRAUMATIC HAEMATOMA [None]
